FAERS Safety Report 6758365-1 (Version None)
Quarter: 2010Q2

REPORT INFORMATION
  Report Type: 
  Country: None (occurrence: None)
  Receive Date: 20100607
  Receipt Date: 20100601
  Transmission Date: 20101027
  Serious: Yes (Death)
  Sender: FDA-Public Use
  Company Number: IT-CELGENEUS-083-21880-10052200

PATIENT
  Sex: Female

DRUGS (2)
  1. REVLIMID [Suspect]
     Indication: MULTIPLE MYELOMA
     Route: 048
     Dates: start: 20100330, end: 20100420
  2. SOLDESAM [Suspect]
     Indication: MULTIPLE MYELOMA
     Dosage: 10ML 20MG EVERY TUESDAY
     Route: 065
     Dates: start: 20100419

REACTIONS (1)
  - MULTIPLE MYELOMA [None]
